FAERS Safety Report 14323163 (Version 1)
Quarter: 2017Q4

REPORT INFORMATION
  Report Type: Spontaneous
  Country: FR (occurrence: FR)
  Receive Date: 20171226
  Receipt Date: 20171226
  Transmission Date: 20180321
  Serious: Yes (Other)
  Sender: FDA-Public Use
  Company Number: FR-MERCK KGAA-2037705

PATIENT
  Age: 39 Year
  Sex: Female
  Weight: 101 kg

DRUGS (1)
  1. NOVOTHYROX [Suspect]
     Active Substance: LEVOTHYROXINE SODIUM
     Indication: THYROIDECTOMY
     Route: 048
     Dates: start: 20170701, end: 201709

REACTIONS (5)
  - Disturbance in attention [Recovered/Resolved]
  - Diffuse alopecia [Recovered/Resolved]
  - Hypertrichosis [Recovered/Resolved]
  - Loss of libido [Recovered/Resolved]
  - Fatigue [Recovered/Resolved]

NARRATIVE: CASE EVENT DATE: 201707
